FAERS Safety Report 4534327-X (Version None)
Quarter: 2004Q4

REPORT INFORMATION
  Report Type: 
  Country: None (occurrence: None)
  Receive Date: 20041221
  Receipt Date: 20041221
  Transmission Date: 20050328
  Serious: Yes (Other)
  Sender: FDA-Public Use
  Company Number: None

PATIENT
  Age: 75 Year
  Sex: Male
  Weight: 69.4003 kg

DRUGS (7)
  1. IBUPROFEN [Suspect]
     Indication: ARTHRALGIA
     Dosage: 200MG ORAL
     Route: 048
     Dates: start: 20041129
  2. IBUPROFEN [Suspect]
     Indication: MYALGIA
     Dosage: 200MG ORAL
     Route: 048
     Dates: start: 20041129
  3. IBUPROFEN [Suspect]
     Indication: ARTHRALGIA
     Dosage: 200MG ORAL
     Route: 048
     Dates: start: 20041130
  4. IBUPROFEN [Suspect]
     Indication: MYALGIA
     Dosage: 200MG ORAL
     Route: 048
     Dates: start: 20041130
  5. DIGITEK [Concomitant]
  6. COZAAR [Concomitant]
  7. PEPCID [Concomitant]

REACTIONS (8)
  - CARDIAC DISORDER [None]
  - CONFUSIONAL STATE [None]
  - DISCOMFORT [None]
  - DISORIENTATION [None]
  - FATIGUE [None]
  - PAIN EXACERBATED [None]
  - SPEECH DISORDER [None]
  - VISUAL DISTURBANCE [None]
